FAERS Safety Report 19540491 (Version 1)
Quarter: 2021Q3

REPORT INFORMATION
  Report Type: Spontaneous
  Country: US (occurrence: US)
  Receive Date: 20210714
  Receipt Date: 20210714
  Transmission Date: 20211014
  Serious: Yes (Other)
  Sender: FDA-Public Use
  Company Number: None

PATIENT
  Age: 28 Year
  Sex: Female
  Weight: 115.2 kg

DRUGS (2)
  1. ELURYNG [Suspect]
     Active Substance: ETHINYL ESTRADIOL\ETONOGESTREL
     Indication: CONTRACEPTION
     Dosage: ?          QUANTITY:1 RING;OTHER FREQUENCY:INSERT FOR 3 WEEKS;?
     Route: 067
     Dates: start: 20200601, end: 20210325
  2. NUVARING [Concomitant]
     Active Substance: ETHINYL ESTRADIOL\ETONOGESTREL

REACTIONS (11)
  - Panic attack [None]
  - Product substitution issue [None]
  - Depression [None]
  - Hypersomnia [None]
  - Complication associated with device [None]
  - Insomnia [None]
  - Migraine [None]
  - Loss of personal independence in daily activities [None]
  - Anxiety [None]
  - Musculoskeletal stiffness [None]
  - Mood altered [None]

NARRATIVE: CASE EVENT DATE: 20200601
